FAERS Safety Report 9243434 (Version 1)
Quarter: 2013Q2

REPORT INFORMATION
  Report Type: Spontaneous
  Country: FR (occurrence: FR)
  Receive Date: 20130421
  Receipt Date: 20130421
  Transmission Date: 20140414
  Serious: Yes (Hospitalization, Other)
  Sender: FDA-Public Use
  Company Number: FR-UCBSA-083175

PATIENT
  Age: 73 Year
  Sex: Male

DRUGS (6)
  1. KEPPRA [Suspect]
     Indication: EPILEPSY
     Route: 048
     Dates: start: 20130219, end: 20130222
  2. COZAAR [Concomitant]
  3. COZAAR [Concomitant]
     Dates: start: 20130227
  4. DIAMICRON [Concomitant]
     Dates: end: 20130222
  5. DIAMICRON [Concomitant]
     Dates: start: 20130227
  6. KARDEGIC [Concomitant]
     Dates: end: 20130222

REACTIONS (2)
  - Renal failure acute [Recovered/Resolved]
  - Nephritis allergic [Recovered/Resolved]
